FAERS Safety Report 5742399-X (Version None)
Quarter: 2008Q2

REPORT INFORMATION
  Report Type: 
  Country: None (occurrence: None)
  Receive Date: 20080515
  Receipt Date: 20080429
  Transmission Date: 20081010
  Serious: Yes (Other)
  Sender: FDA-Public Use
  Company Number: S08-ESP-01491-01

PATIENT
  Age: 60 Year
  Sex: Female
  Weight: 85.5 kg

DRUGS (5)
  1. ESCITALOPRAM [Suspect]
     Indication: ANXIETY
     Dosage: 10 MG QD PO
     Route: 048
     Dates: start: 20080121, end: 20080321
  2. LORAZEPAM [Concomitant]
  3. LEXATIN (BROMAZEPAM) [Concomitant]
  4. LOVASTATIN [Concomitant]
  5. AMITRIPTYLINE HCL [Concomitant]

REACTIONS (2)
  - DECREASED APPETITE [None]
  - WEIGHT INCREASED [None]
